FAERS Safety Report 7524431-6 (Version None)
Quarter: 2011Q2

REPORT INFORMATION
  Report Type: 
  Country: None (occurrence: None)
  Receive Date: 20110525
  Receipt Date: 20110516
  Transmission Date: 20111010
  Serious: Yes (Hospitalization, Other)
  Sender: FDA-Public Use
  Company Number: BR-000317

PATIENT
  Sex: Female

DRUGS (1)
  1. NAGLAZYME [Suspect]
     Indication: MUCOPOLYSACCHARIDOSIS VI
     Dosage: (20 MG 1X/WEEK INTRAENOUS DRIP)
     Route: 041
     Dates: start: 20090205

REACTIONS (8)
  - MITRAL VALVE INCOMPETENCE [None]
  - CERVICAL SPINAL STENOSIS [None]
  - EXOPHTHALMOS [None]
  - OPTIC NERVE DISORDER [None]
  - HYDROCEPHALUS [None]
  - COGNITIVE DISORDER [None]
  - SPINAL CORD COMPRESSION [None]
  - INTRACRANIAL PRESSURE INCREASED [None]
